FAERS Safety Report 20079207 (Version 2)
Quarter: 2021Q4

REPORT INFORMATION
  Report Type: Spontaneous
  Country: CH (occurrence: CH)
  Receive Date: 20211117
  Receipt Date: 20211125
  Transmission Date: 20220303
  Serious: Yes (Death)
  Sender: FDA-Public Use
  Company Number: CH-BAYER-2021A249779

PATIENT

DRUGS (1)
  1. EYLEA [Suspect]
     Active Substance: AFLIBERCEPT
     Indication: Age-related macular degeneration
     Dosage: DOSAGE, FREQUENCY AND TOTAL NUMBER OF EYLEA INJECTIONS ARE UNKNOWN. LAST DOSE WAS INJECTED ON 03-JUN
     Dates: start: 20140501, end: 20210603

REACTIONS (2)
  - Death [Fatal]
  - Off label use [Unknown]
